FAERS Safety Report 7395097-3 (Version None)
Quarter: 2011Q2

REPORT INFORMATION
  Report Type: 
  Country: None (occurrence: None)
  Receive Date: 20110405
  Receipt Date: 20110328
  Transmission Date: 20111010
  Serious: Yes (Other)
  Sender: FDA-Public Use
  Company Number: US-TEVA-273997USA

PATIENT
  Age: 66 Year
  Sex: Female

DRUGS (3)
  1. PROPRANOLOL HCL [Interacting]
     Indication: HYPERTENSION
  2. LIDOCAINE [Interacting]
  3. EPINEPHRINE [Suspect]

REACTIONS (2)
  - HYPERTENSIVE CRISIS [None]
  - DRUG INTERACTION [None]
